FAERS Safety Report 10199876 (Version 1)
Quarter: 2014Q2

REPORT INFORMATION
  Report Type: Spontaneous
  Country: US (occurrence: US)
  Receive Date: 20140527
  Receipt Date: 20140527
  Transmission Date: 20141212
  Serious: No
  Sender: FDA-Public Use
  Company Number: US-NOVEN-14US009027

PATIENT
  Age: 9 Year
  Sex: Female
  Weight: 54.42 kg

DRUGS (11)
  1. DAYTRANA [Suspect]
     Indication: ATTENTION DEFICIT/HYPERACTIVITY DISORDER
     Dosage: 20 MG X 2 PATCHES
     Route: 062
     Dates: start: 2014
  2. DAYTRANA [Suspect]
     Dosage: 20 MG X 2 PATCHES
     Route: 062
     Dates: start: 201312
  3. DAYTRANA [Suspect]
     Dosage: 20 MG X 2 PATCHES
     Route: 062
     Dates: start: 201102
  4. DAYTRANA [Suspect]
     Dosage: UNK
     Route: 062
  5. PREVACID [Concomitant]
     Indication: GASTROOESOPHAGEAL REFLUX DISEASE
     Dosage: 30 MG, BEDTIME
     Route: 048
  6. AMANTADINE [Concomitant]
     Indication: PRODUCT USED FOR UNKNOWN INDICATION
     Dosage: 10 ML, Q AM
     Route: 048
  7. FISH OIL [Concomitant]
     Indication: PRODUCT USED FOR UNKNOWN INDICATION
     Dosage: 2 CAPSULES Q AM
     Route: 048
  8. LAMICTAL [Concomitant]
     Indication: CONVULSION
     Dosage: 300 MG, AM
     Route: 048
  9. LAMICTAL [Concomitant]
     Dosage: 300 MG, Q PM
     Route: 048
  10. CLONIDINE [Concomitant]
     Indication: PRODUCT USED FOR UNKNOWN INDICATION
     Dosage: 0.2 MG, Q AM
     Route: 048
  11. CLONIDINE [Concomitant]
     Dosage: 0.2 MG, AT 1 PM
     Route: 048

REACTIONS (6)
  - Wrong technique in drug usage process [Not Recovered/Not Resolved]
  - Drug administration error [Not Recovered/Not Resolved]
  - Off label use [Recovered/Resolved]
  - Product quality issue [Not Recovered/Not Resolved]
  - Product packaging quantity issue [Not Recovered/Not Resolved]
  - No adverse event [None]
